FAERS Safety Report 16311397 (Version 2)
Quarter: 2019Q3

REPORT INFORMATION
  Report Type: Spontaneous
  Country: US (occurrence: US)
  Receive Date: 20190514
  Receipt Date: 20190819
  Transmission Date: 20191004
  Serious: Yes (Hospitalization, Other)
  Sender: FDA-Public Use
  Company Number: US-PFIZER INC-2019199585

PATIENT
  Age: 58 Year
  Sex: Male
  Weight: 106.98 kg

DRUGS (10)
  1. GABAPENTIN. [Concomitant]
     Active Substance: GABAPENTIN
     Indication: OSTEOARTHRITIS
     Dosage: 600 MG, THRICE DAILY
     Dates: start: 201302
  2. CELEBREX [Concomitant]
     Active Substance: CELECOXIB
     Indication: OSTEOARTHRITIS
     Dosage: 400 MG, DAILY
     Route: 048
     Dates: start: 201302
  3. LYRICA [Suspect]
     Active Substance: PREGABALIN
     Indication: SPINAL OPERATION
  4. CELEBREX [Concomitant]
     Active Substance: CELECOXIB
     Indication: OSTEONECROSIS
  5. CELEBREX [Concomitant]
     Active Substance: CELECOXIB
     Indication: SPINAL OPERATION
  6. GABAPENTIN. [Concomitant]
     Active Substance: GABAPENTIN
     Indication: OSTEONECROSIS
  7. LYRICA [Suspect]
     Active Substance: PREGABALIN
     Indication: OSTEOARTHRITIS
     Dosage: 150 MG, TWICE DAILY
     Route: 048
  8. GABAPENTIN. [Concomitant]
     Active Substance: GABAPENTIN
     Indication: SPINAL OPERATION
  9. LYRICA [Suspect]
     Active Substance: PREGABALIN
     Indication: OSTEONECROSIS
     Dosage: 150 MG, ONCE DAILY
     Route: 048
     Dates: start: 201803, end: 201905
  10. LYRICA [Suspect]
     Active Substance: PREGABALIN
     Indication: NEURALGIA

REACTIONS (4)
  - Deep vein thrombosis [Recovered/Resolved with Sequelae]
  - Somnolence [Not Recovered/Not Resolved]
  - Intentional product use issue [Unknown]
  - Drug ineffective [Not Recovered/Not Resolved]

NARRATIVE: CASE EVENT DATE: 201303
